FAERS Safety Report 7130450-4 (Version None)
Quarter: 2010Q4

REPORT INFORMATION
  Report Type: 
  Country: None (occurrence: None)
  Receive Date: 20101101
  Receipt Date: 20100312
  Transmission Date: 20110411
  Serious: Yes (Other)
  Sender: FDA-Public Use
  Company Number: 227655USA

PATIENT
  Sex: Female

DRUGS (1)
  1. BECLOMETHASONE DIPROPIONATE [Suspect]
     Dosage: (80 MCG)

REACTIONS (5)
  - BRONCHOSPASM [None]
  - DYSPNOEA [None]
  - FACE OEDEMA [None]
  - LUNG DISORDER [None]
  - THROAT IRRITATION [None]
